FAERS Safety Report 16463291 (Version 1)
Quarter: 2019Q2

REPORT INFORMATION
  Report Type: Spontaneous
  Country: US (occurrence: US)
  Receive Date: 20190621
  Receipt Date: 20190621
  Transmission Date: 20190711
  Serious: Yes (Other)
  Sender: FDA-Public Use
  Company Number: US-009507513-1906USA004151

PATIENT
  Age: 37 Year
  Sex: Female

DRUGS (5)
  1. GANIRELIX ACETATE INJECTION [Suspect]
     Active Substance: GANIRELIX ACETATE
     Indication: INFERTILITY
     Dosage: 250 MICROGRAM, QD
     Route: 058
     Dates: start: 20190531
  2. LEUPROLIDE [Concomitant]
     Active Substance: LEUPROLIDE
  3. GONADOTROPIN, CHORIONIC [Concomitant]
     Active Substance: CHORIOGONADOTROPIN ALFA
  4. DOXYCYCLINE. [Concomitant]
     Active Substance: DOXYCYCLINE
  5. FOLLISTIM [Suspect]
     Active Substance: FOLLITROPIN
     Indication: INFERTILITY
     Dosage: STRENGTH: 900 UNITS; 300 UNITS EVERY DAY
     Route: 058
     Dates: start: 20190531

REACTIONS (2)
  - Abnormal dreams [Unknown]
  - Mood swings [Unknown]

NARRATIVE: CASE EVENT DATE: 20190610
